FAERS Safety Report 8227937-X (Version None)
Quarter: 2012Q1

REPORT INFORMATION
  Report Type: 
  Country: None (occurrence: None)
  Receive Date: 20120322
  Receipt Date: 20120313
  Transmission Date: 20120608
  Serious: Yes (Hospitalization, Other)
  Sender: FDA-Public Use
  Company Number: US-SANOFI-AVENTIS-2012SA007477

PATIENT
  Age: 73 Year
  Sex: Female

DRUGS (27)
  1. ERLOTINIB HYDROCHLORIDE [Suspect]
     Indication: NON-SMALL CELL LUNG CANCER STAGE IV
     Route: 065
     Dates: start: 20120118, end: 20120128
  2. LEVOTHYROXINE SODIUM [Concomitant]
  3. LISINOPRIL AND HYDROCHLOROTHIAZIDE [Suspect]
     Route: 065
  4. PROMETHAZINE [Concomitant]
     Dosage: Q4H/PRN
     Route: 042
     Dates: start: 20120127
  5. MORPHINE SULFATE [Concomitant]
     Dosage: STK-MED/O
     Route: 042
     Dates: start: 20120127, end: 20120127
  6. CISPLATIN [Suspect]
     Indication: NON-SMALL CELL LUNG CANCER STAGE IV
     Route: 065
     Dates: start: 20120118, end: 20120128
  7. SODIUM CHLORIDE [Concomitant]
     Dosage: STK-MED/O
     Route: 042
     Dates: start: 20120127, end: 20120127
  8. ACETAMINOPHEN AND HYDROCODONE BITARTRATE [Concomitant]
  9. ALPRAZOLAM [Concomitant]
  10. ZOFRAN [Concomitant]
  11. DOCETAXEL [Suspect]
     Indication: NON-SMALL CELL LUNG CANCER STAGE IV
     Route: 065
     Dates: start: 20120118, end: 20120128
  12. PANTOPRAZOLE SODIUM [Concomitant]
     Dosage: FREQUENCY: ACD
     Route: 048
     Dates: start: 20120130
  13. TEMAZEPAM [Concomitant]
     Dosage: HS/PRN
     Route: 048
     Dates: start: 20120127
  14. SODIUM CHLORIDE [Concomitant]
     Dosage: STK-MED/O
     Route: 042
     Dates: start: 20120127, end: 20120127
  15. DEXTROSE [Concomitant]
     Route: 042
     Dates: start: 20120127, end: 20120128
  16. ONDANSETRON [Concomitant]
     Dosage: STK-MED/O
     Route: 042
     Dates: start: 20120127, end: 20120127
  17. PIPERACILLIN [Concomitant]
     Dosage: STK-MED/O
     Route: 042
     Dates: start: 20120127, end: 20120127
  18. ERLOTINIB HYDROCHLORIDE [Suspect]
     Dosage: DOSE REDUCED
     Route: 065
     Dates: start: 20120202
  19. LISINOPRIL AND HYDROCHLOROTHIAZIDE [Suspect]
     Indication: HYPERTENSION
     Route: 065
  20. DIPHENHYDRAMINE HCL [Concomitant]
     Dosage: FREQUENCY: 1.DO/NR
     Route: 042
     Dates: start: 20120127, end: 20120128
  21. CISPLATIN [Suspect]
     Route: 065
     Dates: start: 20120202
  22. FENTANYL CITRATE [Concomitant]
     Dosage: FREQUENCY: Q4H/PRN
     Route: 042
     Dates: start: 20120127
  23. PANTOPRAZOLE [Concomitant]
     Route: 042
     Dates: start: 20120128
  24. DOCETAXEL [Suspect]
     Route: 065
     Dates: start: 20120202
  25. LORAZEPAM [Concomitant]
     Dosage: FREQUENCY: Q6H/PRN
     Route: 042
     Dates: start: 20120127
  26. ONDANSETRON [Concomitant]
     Dosage: Q6H/PRN
     Route: 042
     Dates: start: 20120127
  27. SODIUM CHLORIDE [Concomitant]
     Dosage: STK-MED/O
     Route: 042
     Dates: start: 20120127, end: 20120127

REACTIONS (16)
  - RENAL FAILURE ACUTE [None]
  - GASTROENTERITIS [None]
  - NEOPLASM MALIGNANT [None]
  - PNEUMONIA [None]
  - HEPATIC LESION [None]
  - INSOMNIA [None]
  - PSEUDOMONAS TEST POSITIVE [None]
  - DIVERTICULITIS [None]
  - WEIGHT DECREASED [None]
  - MUSCULOSKELETAL DISCOMFORT [None]
  - MUSCLE SPASMS [None]
  - VOMITING [None]
  - DECREASED APPETITE [None]
  - MALNUTRITION [None]
  - DEHYDRATION [None]
  - MALAISE [None]
